FAERS Safety Report 7921845-7 (Version None)
Quarter: 2011Q4

REPORT INFORMATION
  Report Type: 
  Country: None (occurrence: None)
  Receive Date: 20111117
  Receipt Date: 20111111
  Transmission Date: 20120403
  Serious: Yes (Death)
  Sender: FDA-Public Use
  Company Number: US-CELGENEUS-163-21880-11081467

PATIENT
  Sex: Male

DRUGS (16)
  1. REVLIMID [Suspect]
     Indication: MULTIPLE MYELOMA
     Dosage: 25 MILLIGRAM
     Route: 048
     Dates: start: 20070413, end: 20070101
  2. CELEXA [Concomitant]
     Dosage: 20 MILLIGRAM
     Route: 048
  3. ZOFRAN [Concomitant]
     Dosage: 8 MILLIGRAM
     Route: 048
  4. ZOCOR [Concomitant]
     Dosage: 10 MILLIGRAM
     Route: 048
  5. NEURONTIN [Concomitant]
     Dosage: 100 MILLIGRAM
     Route: 048
  6. ZETIA [Concomitant]
     Dosage: 10 MILLIGRAM
     Route: 065
  7. DUONEB [Concomitant]
     Dosage: 0.5-2.5
     Route: 065
  8. REVLIMID [Suspect]
     Dosage: 20 MILLIGRAM
     Route: 048
     Dates: start: 20101001, end: 20110505
  9. PROCHLORPERAZINE MALEATE [Concomitant]
     Indication: NAUSEA
     Dosage: 10 MILLIGRAM
     Route: 065
  10. PERCOCET [Concomitant]
     Indication: PAIN
     Dosage: 7.5-500MG
     Route: 048
  11. REVLIMID [Suspect]
     Dosage: 10-20MG
     Route: 048
     Dates: start: 20100701, end: 20100101
  12. REVLIMID [Suspect]
     Dosage: 10 MILLIGRAM
     Route: 048
     Dates: start: 20080301, end: 20080101
  13. REVLIMID [Suspect]
     Dosage: 10 MILLIGRAM
     Route: 048
     Dates: start: 20090601, end: 20100701
  14. ASPIRIN [Concomitant]
     Dosage: 325 MILLIGRAM
     Route: 065
  15. COUMADIN [Concomitant]
     Dosage: 2 MILLIGRAM
     Route: 048
  16. CARDIZEM LA [Concomitant]
     Dosage: 240 MILLIGRAM
     Route: 048

REACTIONS (2)
  - CARDIOPULMONARY FAILURE [None]
  - RENAL FAILURE [None]
